FAERS Safety Report 12070722 (Version 1)
Quarter: 2016Q1

REPORT INFORMATION
  Report Type: Spontaneous
  Country: US (occurrence: US)
  Receive Date: 20160211
  Receipt Date: 20160211
  Transmission Date: 20160526
  Serious: No
  Sender: FDA-Public Use
  Company Number: US-LUNDBECK-DKLU2008784

PATIENT
  Sex: Male

DRUGS (2)
  1. SABRIL [Suspect]
     Active Substance: VIGABATRIN
     Indication: STATUS EPILEPTICUS
     Route: 065
     Dates: start: 20151212
  2. SABRIL [Suspect]
     Active Substance: VIGABATRIN
     Indication: GENERALISED TONIC-CLONIC SEIZURE
     Route: 065
     Dates: start: 20151212

REACTIONS (3)
  - Ear pain [Not Recovered/Not Resolved]
  - Eye pain [Not Recovered/Not Resolved]
  - Pain [Not Recovered/Not Resolved]
